FAERS Safety Report 10004129 (Version 2)
Quarter: 2014Q1

REPORT INFORMATION
  Report Type: Spontaneous
  Country: TR (occurrence: TR)
  Receive Date: 20140312
  Receipt Date: 20140324
  Transmission Date: 20141002
  Serious: Yes (Other)
  Sender: FDA-Public Use
  Company Number: TR-BAXTER-2014BAX010920

PATIENT
  Age: 27 Year
  Sex: Female

DRUGS (1)
  1. IZOTONIK SODYUM KLOR?R PVC [Suspect]
     Indication: FEMALE GENITAL OPERATION
     Route: 065
     Dates: start: 20140226, end: 20140226

REACTIONS (2)
  - Infusion site erythema [Recovered/Resolved]
  - Chills [Recovered/Resolved]
